FAERS Safety Report 13156758 (Version 3)
Quarter: 2017Q2

REPORT INFORMATION
  Report Type: Spontaneous
  Country: PT (occurrence: PT)
  Receive Date: 20170126
  Receipt Date: 20170417
  Transmission Date: 20170830
  Serious: Yes (Death, Hospitalization, Other)
  Sender: FDA-Public Use
  Company Number: PT-ROCHE-1884238

PATIENT
  Sex: Female

DRUGS (4)
  1. MABTHERA [Suspect]
     Active Substance: RITUXIMAB
     Indication: JUVENILE IDIOPATHIC ARTHRITIS
     Dosage: 1000 MG WEEK 0 AND WEEK 2 ON DEMAND
     Route: 042
     Dates: start: 2008, end: 20161212
  2. PREDNISOLONE. [Concomitant]
     Active Substance: PREDNISOLONE
     Route: 065
  3. INDOCID [Concomitant]
     Active Substance: INDOMETHACIN
  4. LEDERTREXATE [Concomitant]
     Active Substance: METHOTREXATE
     Route: 065

REACTIONS (6)
  - Infected skin ulcer [Not Recovered/Not Resolved]
  - Respiratory tract infection [Fatal]
  - Synovitis [Not Recovered/Not Resolved]
  - Product use in unapproved indication [Fatal]
  - Diabetic coma [Fatal]
  - Off label use [Fatal]

NARRATIVE: CASE EVENT DATE: 20161228
